FAERS Safety Report 5080253-X (Version None)
Quarter: 2006Q3

REPORT INFORMATION
  Report Type: 
  Country: None (occurrence: None)
  Receive Date: 20060815
  Receipt Date: 20060710
  Transmission Date: 20061208
  Serious: Yes (Other)
  Sender: FDA-Public Use
  Company Number: JP-BAYER-200610886BYL

PATIENT
  Age: 91 Year
  Sex: Female
  Weight: 40 kg

DRUGS (10)
  1. AVELOX [Suspect]
     Indication: PNEUMONIA
     Dosage: TOTAL DAILY DOSE: 400 MG  UNIT DOSE: 400 MG
     Route: 048
     Dates: start: 20060617, end: 20060626
  2. BLOPRESS [Concomitant]
     Indication: HYPERTENSION
     Dosage: TOTAL DAILY DOSE: 8 MG  UNIT DOSE: 8 MG
     Route: 048
     Dates: start: 20030227
  3. ROCALTROL [Concomitant]
     Indication: OSTEOPOROSIS
     Dosage: TOTAL DAILY DOSE: 0.25 MG  UNIT DOSE: 0.25 MG
     Route: 048
     Dates: start: 20030322
  4. MUCODYNE [Concomitant]
     Indication: EMPHYSEMA
     Dosage: TOTAL DAILY DOSE: 250 MG  UNIT DOSE: 250 MG
     Route: 048
     Dates: start: 20060402
  5. SELBEX [Concomitant]
     Indication: GASTRITIS
     Dosage: TOTAL DAILY DOSE: 50 MG  UNIT DOSE: 50 MG
     Route: 048
     Dates: start: 20030227
  6. 8-HOUR BAYER [Concomitant]
     Indication: ANGINA PECTORIS
     Dosage: TOTAL DAILY DOSE: 100 MG  UNIT DOSE: 100 MG
     Route: 048
     Dates: start: 20050125
  7. LASIX [Concomitant]
     Indication: CARDIAC FAILURE
     Dosage: TOTAL DAILY DOSE: 20 MG  UNIT DOSE: 20 MG
     Route: 048
     Dates: start: 20060113
  8. ALLOPURINOL [Concomitant]
     Indication: HYPERURICAEMIA
     Dosage: TOTAL DAILY DOSE: 100 MG  UNIT DOSE: 100 MG
     Route: 048
     Dates: start: 20060509
  9. FRANDOL S [Concomitant]
     Route: 062
  10. HOKUNALIN [Concomitant]
     Route: 062

REACTIONS (3)
  - BURNING SENSATION [None]
  - DRUG ERUPTION [None]
  - TOXIC EPIDERMAL NECROLYSIS [None]
